FAERS Safety Report 8806940 (Version 1)
Quarter: 2012Q4

REPORT INFORMATION
  Report Type: 
  Country: FR (occurrence: FR)
  Receive Date: 20120925
  Receipt Date: 20120925
  Transmission Date: 20130627
  Serious: Yes (Hospitalization, Other)
  Sender: FDA-Public Use
  Company Number: FR-PFIZER INC-2012234721

PATIENT
  Age: 47 Year
  Sex: Male

DRUGS (2)
  1. LYRICA [Suspect]
     Dosage: 1600 mg
     Dates: start: 201102
  2. CONTRAMAL [Suspect]
     Indication: PAIN
     Dosage: 100 mg
     Dates: start: 201102

REACTIONS (6)
  - Drug abuse [Unknown]
  - Logorrhoea [Recovered/Resolved]
  - Mydriasis [Recovered/Resolved]
  - Tachycardia [Recovered/Resolved]
  - Euphoric mood [Recovered/Resolved]
  - Agitation [Recovered/Resolved]
